FAERS Safety Report 7617444-7 (Version None)
Quarter: 2011Q3

REPORT INFORMATION
  Report Type: 
  Country: None (occurrence: None)
  Receive Date: 20110718
  Receipt Date: 20110713
  Transmission Date: 20111222
  Serious: No
  Sender: FDA-Public Use
  Company Number: US-PFIZER INC-2011159007

PATIENT
  Sex: Male

DRUGS (1)
  1. ADVIL PM [Suspect]
     Indication: INSOMNIA
     Dosage: 200 MG ONCE A DAY
     Route: 048
     Dates: start: 20110701, end: 20110713

REACTIONS (3)
  - SOMNOLENCE [None]
  - DRUG INEFFECTIVE [None]
  - NAUSEA [None]
